FAERS Safety Report 7049246-7 (Version None)
Quarter: 2010Q4

REPORT INFORMATION
  Report Type: 
  Country: None (occurrence: None)
  Receive Date: 20101018
  Receipt Date: 20101013
  Transmission Date: 20110411
  Serious: Yes (Hospitalization, Other)
  Sender: FDA-Public Use
  Company Number: BR-ROCHE-715962

PATIENT
  Sex: Female
  Weight: 67 kg

DRUGS (7)
  1. RIVOTRIL [Suspect]
     Indication: ANXIETY
     Dosage: TAKEN IN THE MORNING AND AT NIGHT;OTHER INDCTN:TACHYCARDIA
     Route: 048
     Dates: start: 19830101
  2. CLONAZEPAM (NON-ROCHE) [Suspect]
     Indication: ANXIETY
     Dosage: OTHER INDICATION: TACHYCARDIA.
     Route: 065
  3. URBANYL [Concomitant]
     Dosage: INDICATION:TO ENHANCE RIVOTRILS EFFECT
     Route: 048
     Dates: start: 20040101, end: 20070101
  4. CARBAMAZEPINE [Concomitant]
     Route: 048
     Dates: start: 20100201
  5. LITHIUM CARBONATE [Concomitant]
     Indication: CRYING
     Route: 048
  6. CELESTONE SOLUSPAN [Concomitant]
     Indication: OPTIC NEURITIS
     Dosage: DOSE 3MG/ML
     Dates: start: 20100601, end: 20100701
  7. RUBRANOVA [Concomitant]
     Dates: start: 20100709, end: 20100711

REACTIONS (24)
  - ABDOMINAL PAIN UPPER [None]
  - ACCIDENT [None]
  - ACCIDENTAL EXPOSURE [None]
  - ACTIVITIES OF DAILY LIVING IMPAIRED [None]
  - AMENORRHOEA [None]
  - ANAEMIA [None]
  - BLINDNESS [None]
  - BONE PAIN [None]
  - BREAST PAIN [None]
  - CONVULSION [None]
  - CRYING [None]
  - DEAFNESS [None]
  - DRUG INEFFECTIVE [None]
  - FALL [None]
  - HEADACHE [None]
  - HOSPITALISATION [None]
  - INSOMNIA [None]
  - MALAISE [None]
  - MEDICATION ERROR [None]
  - PAIN [None]
  - SOMNOLENCE [None]
  - TRAUMATIC BRAIN INJURY [None]
  - TREMOR [None]
  - WEIGHT INCREASED [None]
